FAERS Safety Report 25968236 (Version 1)
Quarter: 2025Q4

REPORT INFORMATION
  Report Type: Spontaneous
  Country: US (occurrence: US)
  Receive Date: 20251028
  Receipt Date: 20251028
  Transmission Date: 20260118
  Serious: No
  Sender: BAUSCH AND LOMB
  Company Number: US-BAUSCHBL-2025BNL030700

PATIENT
  Sex: Female

DRUGS (1)
  1. XIIDRA [Suspect]
     Active Substance: LIFITEGRAST
     Indication: Product used for unknown indication
     Dosage: 1 DROP IN EACH EYE TWICE DAILY, ABOUT 12 HOURS APART
     Route: 047
     Dates: start: 2024

REACTIONS (2)
  - Erythema of eyelid [Not Recovered/Not Resolved]
  - Eye irritation [Unknown]
